FAERS Safety Report 26121228 (Version 2)
Quarter: 2025Q4

REPORT INFORMATION
  Report Type: Spontaneous
  Country: AU (occurrence: AU)
  Receive Date: 20251204
  Receipt Date: 20251211
  Transmission Date: 20260118
  Serious: Yes (Other)
  Sender: INSUD PHARMA
  Company Number: AU-EXELTIS PHARMACEUTICAL HOLDING, S.L.-2511AU10064

PATIENT
  Age: 41 Year
  Sex: Female
  Weight: 79 kg

DRUGS (2)
  1. DROSPIRENONE [Suspect]
     Active Substance: DROSPIRENONE
     Indication: Contraception
     Dosage: UNK
     Route: 065
     Dates: start: 2024, end: 202503
  2. THYROXINE [Concomitant]
     Active Substance: LEVOTHYROXINE
     Indication: Product used for unknown indication
     Dosage: 10 YEARS AND CEASED (GOOD CONTROL)
     Route: 065

REACTIONS (3)
  - Osteoporotic fracture [Recovering/Resolving]
  - Osteoporosis [Unknown]
  - Condition aggravated [Unknown]

NARRATIVE: CASE EVENT DATE: 20250301
